FAERS Safety Report 20536897 (Version 1)
Quarter: 2022Q1

REPORT INFORMATION
  Report Type: Spontaneous
  Country: CA (occurrence: CA)
  Receive Date: 20220302
  Receipt Date: 20220302
  Transmission Date: 20220423
  Serious: Yes (Other)
  Sender: FDA-Public Use
  Company Number: CA-LUPIN PHARMACEUTICALS INC.-2022-02626

PATIENT
  Sex: Female

DRUGS (8)
  1. METRONIDAZOLE [Suspect]
     Active Substance: METRONIDAZOLE
     Indication: Trichomoniasis
     Dosage: 500 MG, BID
     Route: 048
  2. METRONIDAZOLE [Suspect]
     Active Substance: METRONIDAZOLE
     Dosage: 2 GRAM, QD
     Route: 048
  3. METRONIDAZOLE [Suspect]
     Active Substance: METRONIDAZOLE
     Dosage: 500 MG, BID
     Route: 048
  4. TINIDAZOLE [Suspect]
     Active Substance: TINIDAZOLE
     Indication: Trichomoniasis
     Dosage: 2 GRAM, QD
     Route: 048
  5. TINIDAZOLE [Suspect]
     Active Substance: TINIDAZOLE
     Dosage: 1 GRAM, TID
     Route: 048
  6. CLINDAMYCIN [Concomitant]
     Active Substance: CLINDAMYCIN
     Indication: Product used for unknown indication
     Dosage: UNK
     Route: 061
  7. PAROMOMYCIN [Concomitant]
     Active Substance: PAROMOMYCIN
     Indication: Trichomoniasis
     Dosage: UNK
     Route: 065
  8. BORIC ACID [Concomitant]
     Active Substance: BORIC ACID
     Indication: Trichomoniasis
     Dosage: 600 MILLIGRAM, QD, EVERY NIGHT AT BEDTIME
     Route: 067

REACTIONS (4)
  - Drug resistance [Unknown]
  - Neuropathy peripheral [Unknown]
  - Nausea [Unknown]
  - Fatigue [Unknown]
